FAERS Safety Report 7129820-X (Version None)
Quarter: 2010Q4

REPORT INFORMATION
  Report Type: 
  Country: None (occurrence: None)
  Receive Date: 20101130
  Receipt Date: 20100826
  Transmission Date: 20110411
  Serious: No
  Sender: FDA-Public Use
  Company Number: US-AMGEN-US364142

PATIENT

DRUGS (5)
  1. NPLATE [Suspect]
     Indication: IDIOPATHIC THROMBOCYTOPENIC PURPURA
     Dosage: UNK UNK, UNK
     Dates: start: 20081219
  2. CORTICOSTEROID NOS [Concomitant]
  3. IMMU-G [Concomitant]
     Dosage: UNK UNK, UNK
     Route: 042
  4. RITUXIMAB [Concomitant]
  5. AZATHIOPRINE [Concomitant]

REACTIONS (2)
  - ARTHRALGIA [None]
  - DYSPEPSIA [None]
